FAERS Safety Report 10274937 (Version 2)
Quarter: 2014Q3

REPORT INFORMATION
  Report Type: Spontaneous
  Country: AT (occurrence: AT)
  Receive Date: 20140702
  Receipt Date: 20140702
  Transmission Date: 20150326
  Serious: Yes (Other)
  Sender: FDA-Public Use
  Company Number: PHHY2014AT079653

PATIENT
  Age: 50 Year
  Sex: Female

DRUGS (4)
  1. DIOVAN [Concomitant]
     Active Substance: VALSARTAN
  2. THROMBO ASA [Concomitant]
  3. BISOPROLOL SANDOZ [Suspect]
     Active Substance: BISOPROLOL
     Indication: HEART TRANSPLANT
     Dosage: 1.25 MG, QD
     Route: 048
  4. SERETIDE [Concomitant]
     Active Substance: FLUTICASONE FUROATE\SALMETEROL XINAFOATE
     Indication: ASTHMA

REACTIONS (6)
  - Fluid retention [Not Recovered/Not Resolved]
  - Thyroxine increased [Recovered/Resolved]
  - Tri-iodothyronine increased [Recovered/Resolved]
  - Blood thyroid stimulating hormone increased [Recovered/Resolved]
  - Weight increased [Not Recovered/Not Resolved]
  - Joint swelling [Not Recovered/Not Resolved]

NARRATIVE: CASE EVENT DATE: 20140415
